FAERS Safety Report 5862822-X (Version None)
Quarter: 2008Q3

REPORT INFORMATION
  Report Type: 
  Country: None (occurrence: None)
  Receive Date: 20080828
  Receipt Date: 20080827
  Transmission Date: 20090109
  Serious: Yes (Hospitalization)
  Sender: FDA-Public Use
  Company Number: A0744634A

PATIENT
  Age: 32 Year
  Sex: Female

DRUGS (2)
  1. ALLI [Suspect]
     Route: 048
  2. FLUOXETINE [Concomitant]

REACTIONS (6)
  - ANAESTHETIC COMPLICATION [None]
  - CHOLELITHIASIS [None]
  - GALLBLADDER DISORDER [None]
  - HYPOTENSION [None]
  - NAUSEA [None]
  - PROCEDURAL PAIN [None]
